FAERS Safety Report 4764617-7 (Version None)
Quarter: 2005Q3

REPORT INFORMATION
  Report Type: 
  Country: None (occurrence: None)
  Receive Date: 20050909
  Receipt Date: 20050830
  Transmission Date: 20060218
  Serious: Yes (Other)
  Sender: FDA-Public Use
  Company Number: 2005GB01673

PATIENT
  Age: 93 Year
  Sex: Female

DRUGS (4)
  1. ATENOLOL [Suspect]
     Indication: PAIN
     Route: 048
     Dates: start: 20050614, end: 20050713
  2. SIMVASTATIN [Concomitant]
     Indication: PAIN
     Route: 048
     Dates: start: 20050601
  3. ASPIRIN [Concomitant]
     Indication: PAIN
     Route: 048
     Dates: start: 20050601
  4. GTN [Concomitant]
     Indication: PAIN
     Route: 060
     Dates: start: 20050601

REACTIONS (3)
  - BLOOD CREATINE INCREASED [None]
  - BLOOD SODIUM DECREASED [None]
  - RENAL IMPAIRMENT [None]
